FAERS Safety Report 8793099 (Version 1)
Quarter: 2012Q4

REPORT INFORMATION
  Report Type: 
  Country: US (occurrence: US)
  Receive Date: 20120917
  Receipt Date: 20120917
  Transmission Date: 20130627
  Serious: Yes (Other)
  Sender: FDA-Public Use
  Company Number: US-BAYER-2012-089851

PATIENT
  Age: 4 Year
  Sex: Male

DRUGS (1)
  1. NEXAVAR [Suspect]
     Indication: RHABDOMYOSARCOMA
     Dosage: dissolve 1 tablet in 30 ml water and give 18 ml BID
     Dates: start: 20120802, end: 20120826

REACTIONS (3)
  - Hypertension [Recovered/Resolved]
  - Malaise [None]
  - Epistaxis [Not Recovered/Not Resolved]
